FAERS Safety Report 16583565 (Version 1)
Quarter: 2019Q3

REPORT INFORMATION
  Report Type: Spontaneous
  Country: TW (occurrence: TW)
  Receive Date: 20190717
  Receipt Date: 20190717
  Transmission Date: 20191004
  Serious: Yes (Other)
  Sender: FDA-Public Use
  Company Number: TW-JNJFOC-20190716389

PATIENT
  Weight: 52 kg

DRUGS (3)
  1. REMICADE [Suspect]
     Active Substance: INFLIXIMAB
     Dosage: 280 MILLIGRAM, QD
     Route: 042
     Dates: start: 20190227
  2. REMICADE [Suspect]
     Active Substance: INFLIXIMAB
     Dosage: 280 MILLIGRAM, QD
     Route: 042
     Dates: start: 20190327
  3. REMICADE [Suspect]
     Active Substance: INFLIXIMAB
     Indication: COLITIS ULCERATIVE
     Dosage: 280 MILLIGRAM, QD
     Route: 042
     Dates: start: 20190214

REACTIONS (1)
  - Colon adenoma [Not Recovered/Not Resolved]

NARRATIVE: CASE EVENT DATE: 20190621
